FAERS Safety Report 7041770-6 (Version None)
Quarter: 2010Q4

REPORT INFORMATION
  Report Type: 
  Country: None (occurrence: None)
  Receive Date: 20101013
  Receipt Date: 20100413
  Transmission Date: 20110411
  Serious: No
  Sender: FDA-Public Use
  Company Number: US-ASTRAZENECA-2010SE16389

PATIENT
  Age: 49 Year
  Sex: Male
  Weight: 90.3 kg

DRUGS (1)
  1. SYMBICORT [Suspect]
     Indication: ASTHMA
     Dosage: 320 UG BID
     Route: 055
     Dates: start: 20091001

REACTIONS (2)
  - ASTHMA [None]
  - DRUG DOSE OMISSION [None]
